FAERS Safety Report 10525162 (Version 1)
Quarter: 2014Q4

REPORT INFORMATION
  Report Type: Spontaneous
  Country: US (occurrence: None)
  Receive Date: 20141015
  Receipt Date: 20141015
  Transmission Date: 20150528
  Serious: Yes (Other)
  Sender: FDA-Public Use
  Company Number: None

PATIENT
  Age: 70 Year
  Sex: Female
  Weight: 72.58 kg

DRUGS (1)
  1. AMOXICILLIN. [Suspect]
     Active Substance: AMOXICILLIN
     Indication: INFECTION PROPHYLAXIS
     Dosage: TAKE 4 CAPSULES, 1 HR BFR DENTL APP, TAKEN BY MOUTH
     Route: 048
     Dates: start: 20140415

REACTIONS (6)
  - Feeling abnormal [None]
  - Presyncope [None]
  - Vomiting [None]
  - Dizziness [None]
  - Tremor [None]
  - Apnoea [None]

NARRATIVE: CASE EVENT DATE: 20140415
